FAERS Safety Report 9463619 (Version 2)
Quarter: 2013Q4

REPORT INFORMATION
  Report Type: Report from Study
  Country: US (occurrence: US)
  Receive Date: 20130819
  Receipt Date: 20131025
  Transmission Date: 20140711
  Serious: Yes (Hospitalization, Other)
  Sender: FDA-Public Use
  Company Number: PHEH2013US016816

PATIENT
  Sex: Male

DRUGS (8)
  1. TASIGNA [Suspect]
     Indication: CHRONIC MYELOID LEUKAEMIA
     Dosage: UNK
     Dates: start: 201107, end: 201307
  2. CENTRUM [Concomitant]
  3. NIASPAN [Concomitant]
     Dosage: 1000 MG
  4. ASPIRIN [Concomitant]
     Indication: CORONARY ARTERY DISEASE
     Dosage: 325 MG, DAILY
  5. CRESTOR [Concomitant]
     Indication: HYPERLIPIDAEMIA
     Dosage: 5 MG, DAILY
  6. TYLENOL [Concomitant]
     Dosage: 325 UNK, UNK
  7. ENALAPRIL MALEATE [Concomitant]
     Indication: HYPERTENSION
     Dosage: 5 MG, DAILY
  8. NIACIN [Concomitant]
     Indication: HYPERLIPIDAEMIA
     Dosage: 1000 MG, BID

REACTIONS (9)
  - Arteriosclerosis [Not Recovered/Not Resolved]
  - Renal injury [Unknown]
  - Liver injury [Unknown]
  - Cardiac disorder [Unknown]
  - Electrocardiogram QT prolonged [Unknown]
  - Blood creatine increased [Unknown]
  - Anaemia [Unknown]
  - Fatigue [Unknown]
  - Chest pain [Unknown]
